FAERS Safety Report 14563594 (Version 1)
Quarter: 2018Q1

REPORT INFORMATION
  Report Type: Report from Study
  Country: None (occurrence: CA)
  Receive Date: 20180222
  Receipt Date: 20180222
  Transmission Date: 20180509
  Serious: Yes (Other)
  Sender: FDA-Public Use
  Company Number: CA-ABBVIE-17K-028-2162000-00

PATIENT
  Sex: Male

DRUGS (1)
  1. HUMIRA [Suspect]
     Active Substance: ADALIMUMAB
     Indication: CROHN^S DISEASE
     Route: 058
     Dates: start: 20160715, end: 201801

REACTIONS (3)
  - Crohn^s disease [Not Recovered/Not Resolved]
  - Injection site bruising [Not Recovered/Not Resolved]
  - Intestinal fistula [Not Recovered/Not Resolved]
